FAERS Safety Report 13167232 (Version 3)
Quarter: 2017Q1

REPORT INFORMATION
  Report Type: Report from Study
  Country: US (occurrence: US)
  Receive Date: 20170131
  Receipt Date: 20170322
  Transmission Date: 20170428
  Serious: Yes (Death, Hospitalization, Other)
  Sender: FDA-Public Use
  Company Number: US-BRISTOL-MYERS SQUIBB COMPANY-BMS-2017-004432

PATIENT
  Age: 74 Year
  Sex: Female
  Weight: 74.84 kg

DRUGS (3)
  1. DASATINIB [Suspect]
     Active Substance: DASATINIB
     Indication: PRODUCT USED FOR UNKNOWN INDICATION
     Dosage: 50 MG, QD
     Route: 048
     Dates: start: 20170112
  2. DASATINIB [Suspect]
     Active Substance: DASATINIB
     Indication: ACUTE MYELOID LEUKAEMIA
     Dosage: 20 MG, QD
     Route: 048
     Dates: start: 20170112
  3. CRESEMBA [Concomitant]
     Active Substance: ISAVUCONAZONIUM SULFATE
     Indication: PRODUCT USED FOR UNKNOWN INDICATION
     Dosage: UNK
     Route: 065
     Dates: start: 20170113

REACTIONS (8)
  - Pleural effusion [Recovered/Resolved]
  - Sepsis [Unknown]
  - Malignant neoplasm progression [Fatal]
  - Bacteraemia [Not Recovered/Not Resolved]
  - Mental impairment [Unknown]
  - Hypoxia [Not Recovered/Not Resolved]
  - Product use issue [Unknown]
  - Pulmonary oedema [Recovering/Resolving]

NARRATIVE: CASE EVENT DATE: 20170117
